FAERS Safety Report 4263764-6 (Version None)
Quarter: 2004Q1

REPORT INFORMATION
  Report Type: 
  Country: None (occurrence: None)
  Receive Date: 20040102
  Receipt Date: 20031219
  Transmission Date: 20041129
  Serious: Yes (Hospitalization)
  Sender: FDA-Public Use
  Company Number: USA031255171

PATIENT
  Age: 68 Year
  Sex: Female
  Weight: 82 kg

DRUGS (3)
  1. HUMALOG [Suspect]
     Dates: start: 20010101
  2. HUMULIN L [Suspect]
     Dosage: 15 U/2 DAY
     Dates: start: 19850101
  3. HUMULIN R [Suspect]
     Dates: start: 19830101, end: 20010101

REACTIONS (2)
  - BLOOD PRESSURE INCREASED [None]
  - DIABETES MELLITUS INADEQUATE CONTROL [None]
